FAERS Safety Report 16069618 (Version 1)
Quarter: 2019Q1

REPORT INFORMATION
  Report Type: Spontaneous
  Country: FR (occurrence: FR)
  Receive Date: 20190314
  Receipt Date: 20190314
  Transmission Date: 20190418
  Serious: Yes (Death, Other)
  Sender: FDA-Public Use
  Company Number: FR-DENTSPLY-2019SCDP000129

PATIENT
  Age: 54 Year
  Sex: Male
  Weight: 84 kg

DRUGS (3)
  1. INTRALIPIDE [Concomitant]
     Indication: PRODUCT USED FOR UNKNOWN INDICATION
     Dosage: SOLUTION FOR INJECTION
  2. MEPIVACAINE HCL [Suspect]
     Active Substance: MEPIVACAINE\MEPIVACAINE HYDROCHLORIDE
     Indication: LOCAL ANAESTHESIA
     Dosage: 2 DF, Z, 2 % 15 ML =300MG
     Route: 042
     Dates: start: 20130113
  3. AMOXICILLIN SODIUM AND POTASSIUM CLAVULANATE [Suspect]
     Active Substance: AMOXICILLIN\CLAVULANATE POTASSIUM
     Indication: ANTIBIOTIC PROPHYLAXIS
     Dosage: 2 G, 1D
     Route: 042
     Dates: start: 20130113

REACTIONS (7)
  - Dyspnoea [Fatal]
  - Ventricular fibrillation [Fatal]
  - Drug hypersensitivity [Fatal]
  - Cardiac arrest [Fatal]
  - Dysgeusia [Fatal]
  - Agitation [Fatal]
  - Feeling abnormal [Fatal]

NARRATIVE: CASE EVENT DATE: 201301
